FAERS Safety Report 4690462-7 (Version None)
Quarter: 2005Q2

REPORT INFORMATION
  Report Type: 
  Country: None (occurrence: None)
  Receive Date: 20050615
  Receipt Date: 20050603
  Transmission Date: 20051028
  Serious: Yes (Hospitalization)
  Sender: FDA-Public Use
  Company Number: JP-BRISTOL-MYERS SQUIBB COMPANY-12993507

PATIENT
  Age: 70 Year
  Sex: Male

DRUGS (7)
  1. BRIPLATIN [Suspect]
     Indication: GASTRIC CANCER
     Route: 013
     Dates: start: 20020325
  2. TAXOL [Suspect]
     Indication: GASTRIC CANCER
     Route: 042
     Dates: start: 20031028
  3. FLUOROURACIL [Suspect]
     Indication: GASTRIC CANCER
     Route: 041
     Dates: start: 20020325
  4. FLUOROURACIL [Suspect]
     Route: 013
     Dates: start: 20020325
  5. LEUCOVORIN CALCIUM [Concomitant]
     Route: 041
     Dates: end: 20020325
  6. LEUCOVORIN CALCIUM [Concomitant]
     Route: 013
  7. TS-1 [Concomitant]
     Route: 048
     Dates: start: 20020517

REACTIONS (1)
  - LIVER ABSCESS [None]
